FAERS Safety Report 7681225-9 (Version None)
Quarter: 2011Q3

REPORT INFORMATION
  Report Type: 
  Country: None (occurrence: None)
  Receive Date: 20110812
  Receipt Date: 20110808
  Transmission Date: 20111222
  Serious: Yes (Hospitalization, Other)
  Sender: FDA-Public Use
  Company Number: US-ELI_LILLY_AND_COMPANY-US201108002336

PATIENT
  Sex: Male
  Weight: 82.54 kg

DRUGS (6)
  1. GABAPENTIN [Concomitant]
     Dosage: 100 MG, BID
  2. METFORMIN HCL [Concomitant]
     Indication: TYPE 2 DIABETES MELLITUS
     Dosage: 500 MG, EACH MORNING
  3. FEXOFENADINE [Concomitant]
     Dosage: 180 MG, PRN
  4. GLYBURIDE [Concomitant]
     Indication: TYPE 2 DIABETES MELLITUS
     Dosage: 5 MG, BID
  5. BYETTA [Suspect]
     Indication: TYPE 2 DIABETES MELLITUS
     Dosage: 10 UG, QD
  6. METFORMIN HCL [Concomitant]
     Dosage: 1000 MG, EACH EVENING

REACTIONS (1)
  - PANCREATITIS ACUTE [None]
